FAERS Safety Report 12857318 (Version 1)
Quarter: 2016Q4

REPORT INFORMATION
  Report Type: Spontaneous
  Country: JP (occurrence: JP)
  Receive Date: 20161018
  Receipt Date: 20161018
  Transmission Date: 20170207
  Serious: Yes (Other)
  Sender: FDA-Public Use
  Company Number: JP-GLAXOSMITHKLINE-JP2016JPN148931

PATIENT
  Sex: Female

DRUGS (1)
  1. SAMITREL [Suspect]
     Active Substance: ATOVAQUONE
     Dosage: UNK
     Route: 048
     Dates: start: 201603

REACTIONS (2)
  - Interstitial lung disease [Not Recovered/Not Resolved]
  - Lung disorder [Unknown]
